FAERS Safety Report 9180897 (Version 2)
Quarter: 2013Q2

REPORT INFORMATION
  Report Type: Spontaneous
  Country: JP (occurrence: None)
  Receive Date: 20130320
  Receipt Date: 20130618
  Transmission Date: 20140414
  Serious: Yes (Hospitalization, Other)
  Sender: FDA-Public Use
  Company Number: JP-20130018

PATIENT
  Age: 72 Year
  Sex: Male

DRUGS (3)
  1. LIPIODOL ULTRA FLUIDE [Suspect]
     Indication: THERAPEUTIC EMBOLISATION
     Route: 013
  2. LIPIODOL ULTRA FLUIDE [Suspect]
     Indication: THERAPEUTIC EMBOLISATION
     Route: 013
  3. N-BUTYL CYANOACRYLATE [Suspect]

REACTIONS (5)
  - Gastrointestinal necrosis [None]
  - Off label use [None]
  - Anaemia [None]
  - Abdominal pain [None]
  - Disease progression [None]
